FAERS Safety Report 11664913 (Version 1)
Quarter: 2015Q4

REPORT INFORMATION
  Report Type: Spontaneous
  Country: US (occurrence: None)
  Receive Date: 20151026
  Receipt Date: 20151026
  Transmission Date: 20160304
  Serious: No
  Sender: FDA-Public Use
  Company Number: None

PATIENT
  Age: 43 Year
  Sex: Female
  Weight: 70.76 kg

DRUGS (4)
  1. SERTRALINE [Concomitant]
     Active Substance: SERTRALINE HYDROCHLORIDE
  2. GENERIC FLAGYL [Concomitant]
  3. LEVOTHYROXINE 25 MILLIGRAMS [Suspect]
     Active Substance: LEVOTHYROXINE
     Indication: AUTOIMMUNE THYROIDITIS
     Route: 048
  4. GENERIC BACTRIM [Concomitant]
     Active Substance: SULFAMETHOXAZOLE\TRIMETHOPRIM

REACTIONS (2)
  - Emotional disorder [None]
  - Suicidal ideation [None]

NARRATIVE: CASE EVENT DATE: 20151025
